FAERS Safety Report 9285161 (Version 2)
Quarter: 2013Q3

REPORT INFORMATION
  Report Type: Spontaneous
  Country: PH (occurrence: PH)
  Receive Date: 20130513
  Receipt Date: 20130807
  Transmission Date: 20140515
  Serious: Yes (Death, Other)
  Sender: FDA-Public Use
  Company Number: PH-009507513-1305PHL004545

PATIENT
  Sex: Male

DRUGS (1)
  1. JANUMET [Suspect]
     Dosage: 1 DF, QD
     Route: 048

REACTIONS (1)
  - Hepatic cancer [Fatal]
